FAERS Safety Report 8212176-9 (Version None)
Quarter: 2012Q1

REPORT INFORMATION
  Report Type: 
  Country: None (occurrence: None)
  Receive Date: 20120315
  Receipt Date: 20120309
  Transmission Date: 20120608
  Serious: Yes (Other)
  Sender: FDA-Public Use
  Company Number: CA-UCBSA-050675

PATIENT
  Age: 42 Year
  Sex: Male
  Weight: 86.36 kg

DRUGS (3)
  1. CIMZIA [Suspect]
     Route: 058
     Dates: start: 20110225, end: 20110301
  2. NAPROXEN [Concomitant]
     Indication: RHEUMATOID ARTHRITIS
     Route: 048
     Dates: start: 20080101
  3. CIMZIA [Suspect]
     Indication: RHEUMATOID ARTHRITIS
     Route: 058
     Dates: start: 20110301

REACTIONS (1)
  - HEPATIC STEATOSIS [None]
